FAERS Safety Report 4656710-4 (Version None)
Quarter: 2005Q2

REPORT INFORMATION
  Report Type: 
  Country: None (occurrence: None)
  Receive Date: 20050509
  Receipt Date: 20050429
  Transmission Date: 20051028
  Serious: Yes (Hospitalization)
  Sender: FDA-Public Use
  Company Number: PHNU2005DE01822

PATIENT
  Sex: Male

DRUGS (1)
  1. ZOMETA [Suspect]
     Dates: start: 20041001

REACTIONS (5)
  - ANGIONEUROTIC OEDEMA [None]
  - CEREBROVASCULAR ACCIDENT [None]
  - DIZZINESS [None]
  - DYSAESTHESIA [None]
  - SWELLING FACE [None]
